FAERS Safety Report 4866181-0 (Version None)
Quarter: 2005Q4

REPORT INFORMATION
  Report Type: 
  Country: None (occurrence: None)
  Receive Date: 20051220
  Receipt Date: 20051208
  Transmission Date: 20060501
  Serious: No
  Sender: FDA-Public Use
  Company Number: 2005-575

PATIENT
  Sex: Male

DRUGS (1)
  1. HIBICLENS [Suspect]
     Indication: ANTI-INFECTIVE THERAPY
     Dosage: TOPICAL
     Route: 061
     Dates: start: 20051208

REACTIONS (6)
  - ACCIDENTAL EXPOSURE [None]
  - BLISTER [None]
  - EYE DISORDER [None]
  - EYE PAIN [None]
  - INCORRECT ROUTE OF DRUG ADMINISTRATION [None]
  - INFECTION [None]
